FAERS Safety Report 24422195 (Version 2)
Quarter: 2024Q4

REPORT INFORMATION
  Report Type: Spontaneous
  Country: US (occurrence: US)
  Receive Date: 20241010
  Receipt Date: 20241021
  Transmission Date: 20250114
  Serious: Yes (Life-Threatening, Hospitalization, Other)
  Sender: PFIZER
  Company Number: US-PFIZER INC-PV202400130127

PATIENT
  Age: 44 Year
  Sex: Male

DRUGS (9)
  1. TRANEXAMIC ACID [Suspect]
     Active Substance: TRANEXAMIC ACID
     Indication: Haemostasis
     Dosage: 500 MG, 3X/DAY (PREPROCEDURE NEBULIZED)
     Route: 045
  2. TRANEXAMIC ACID [Suspect]
     Active Substance: TRANEXAMIC ACID
     Dosage: 1000 MG (VIA BAL FOR INTRAPROCEDURAL HEMOSTASIS)
     Route: 045
  3. ALBUTEROL [Concomitant]
     Active Substance: ALBUTEROL
  4. FAMOTIDINE [Concomitant]
     Active Substance: FAMOTIDINE
  5. WARFARIN [Concomitant]
     Active Substance: WARFARIN
  6. TIOTROPIUM [Concomitant]
     Active Substance: TIOTROPIUM
  7. MONTELUKAST [Concomitant]
     Active Substance: MONTELUKAST
  8. LOSARTAN [Concomitant]
     Active Substance: LOSARTAN
  9. FLUTICASONE PROPIONATE\SALMETEROL XINAFOATE [Concomitant]
     Active Substance: FLUTICASONE PROPIONATE\SALMETEROL XINAFOATE

REACTIONS (5)
  - Neurotoxicity [Recovered/Resolved]
  - Mental status changes [Recovered/Resolved]
  - Myoclonus [Recovering/Resolving]
  - Hyperthermia [Recovered/Resolved]
  - Off label use [Unknown]
